FAERS Safety Report 5690974-3 (Version None)
Quarter: 2008Q2

REPORT INFORMATION
  Report Type: 
  Country: None (occurrence: None)
  Receive Date: 20080401
  Receipt Date: 20080324
  Transmission Date: 20081010
  Serious: Yes (Other)
  Sender: FDA-Public Use
  Company Number: US-ELI_LILLY_AND_COMPANY-US200803000940

PATIENT
  Sex: Male

DRUGS (5)
  1. BYETTA [Suspect]
     Dosage: 5 UG, 2/D
     Route: 058
     Dates: start: 20071101, end: 20071201
  2. BYETTA [Suspect]
     Dosage: 10 UG, 2/D
     Route: 058
     Dates: start: 20071201, end: 20080101
  3. LANTUS [Concomitant]
  4. NOVOLIN R [Concomitant]
  5. GLUCOPHAGE [Concomitant]

REACTIONS (4)
  - DIZZINESS [None]
  - HYPERGLYCAEMIA [None]
  - NAUSEA [None]
  - VOMITING [None]
